APPROVED DRUG PRODUCT: CARBIDOPA
Active Ingredient: CARBIDOPA
Strength: 25MG
Dosage Form/Route: TABLET;ORAL
Application: A204763 | Product #001 | TE Code: AB
Applicant: NOVEL LABORATORIES INC
Approved: Oct 20, 2017 | RLD: No | RS: No | Type: RX